FAERS Safety Report 18539264 (Version 1)
Quarter: 2020Q4

REPORT INFORMATION
  Report Type: Spontaneous
  Country: US (occurrence: US)
  Receive Date: 20201124
  Receipt Date: 20201124
  Transmission Date: 20210114
  Serious: No
  Sender: FDA-Public Use
  Company Number: US-KERYX BIOPHARMACEUTICALS INC.-2020US006961

PATIENT
  Sex: Male
  Weight: 76 kg

DRUGS (7)
  1. AURYXIA [Suspect]
     Active Substance: TETRAFERRIC TRICITRATE DECAHYDRATE
     Indication: HYPERPHOSPHATAEMIA
     Dosage: 2 GRAM (2 TABLETS), TID WITH MEALS
     Route: 048
     Dates: start: 2020, end: 20200825
  2. CLONIDINE. [Concomitant]
     Active Substance: CLONIDINE
     Dosage: AS DIRECTED
     Route: 048
  3. AURYXIA [Suspect]
     Active Substance: TETRAFERRIC TRICITRATE DECAHYDRATE
     Dosage: 3 GRAM (3 TABLETS), TID WITH MEALS
     Route: 048
     Dates: start: 20200826
  4. TUMS                               /00193601/ [Concomitant]
     Active Substance: CALCIUM CARBONATE\MAGNESIUM CARBONATE\MAGNESIUM TRISILICATE
     Dosage: AS DIRECTED
     Route: 048
  5. LOSARTAN. [Concomitant]
     Active Substance: LOSARTAN
     Dosage: AS DIRECTED
     Route: 048
  6. HYDRALAZINE [Concomitant]
     Active Substance: HYDRALAZINE HYDROCHLORIDE
     Dosage: AS DIRECTED
     Route: 048
  7. NIFEDIPINE. [Concomitant]
     Active Substance: NIFEDIPINE
     Dosage: AS DIRECTED
     Route: 048

REACTIONS (1)
  - Intentional product misuse [Recovered/Resolved]
